FAERS Safety Report 6862220-6 (Version None)
Quarter: 2010Q3

REPORT INFORMATION
  Report Type: 
  Country: None (occurrence: None)
  Receive Date: 20100721
  Receipt Date: 20100707
  Transmission Date: 20110219
  Serious: Yes (Other)
  Sender: FDA-Public Use
  Company Number: PHHY2010ZA45071

PATIENT
  Sex: Male

DRUGS (4)
  1. DIOVAN HCT [Suspect]
     Dosage: 160/12.5 MG
  2. LESCOL [Concomitant]
  3. ATORVASTATIN [Concomitant]
     Dosage: 40 MG, UNK
     Dates: start: 20070101
  4. GLUCOPHAGE [Concomitant]

REACTIONS (4)
  - BLOOD CHOLESTEROL INCREASED [None]
  - DIABETES MELLITUS [None]
  - GOUT [None]
  - TRANSIENT ISCHAEMIC ATTACK [None]
